FAERS Safety Report 10880258 (Version 4)
Quarter: 2015Q3

REPORT INFORMATION
  Report Type: Spontaneous
  Country: US (occurrence: US)
  Receive Date: 20150302
  Receipt Date: 20150716
  Transmission Date: 20151125
  Serious: No
  Sender: FDA-Public Use
  Company Number: US-PFIZER INC-2015072511

PATIENT
  Age: 70 Year
  Sex: Male
  Weight: 75 kg

DRUGS (8)
  1. VIAGRA [Suspect]
     Active Substance: SILDENAFIL CITRATE
     Indication: PROSTATIC DISORDER
     Dosage: ^25 MM^, DAILY (BEFORE SEX)
     Dates: start: 20150201
  2. ASPIRIN. [Concomitant]
     Active Substance: ASPIRIN
     Dosage: 80 MG, UNK
     Dates: start: 2011
  3. VIAGRA [Suspect]
     Active Substance: SILDENAFIL CITRATE
     Dosage: 20 MG, UNK
     Dates: start: 201503
  4. AZOR [Concomitant]
     Active Substance: AMLODIPINE BESYLATE\OLMESARTAN MEDOXOMIL
     Dosage: ^5/40 MG^
     Dates: start: 2011
  5. ATORVASTATIN [Concomitant]
     Active Substance: ATORVASTATIN
     Dosage: 10 MG, UNK
     Dates: start: 2011
  6. VIAGRA [Suspect]
     Active Substance: SILDENAFIL CITRATE
     Indication: ERECTILE DYSFUNCTION
     Dosage: ^100 MM^ EVERY WEEK SO ONE EVERY 2 OR 3 DAYS
  7. DEXILANT [Concomitant]
     Active Substance: DEXLANSOPRAZOLE
     Dosage: 60 MG, UNK
     Dates: start: 2011
  8. METFORMIN [Concomitant]
     Active Substance: METFORMIN HYDROCHLORIDE
     Dosage: ^15/500 MG^
     Dates: start: 2005

REACTIONS (2)
  - Off label use [Not Recovered/Not Resolved]
  - Drug ineffective [Not Recovered/Not Resolved]

NARRATIVE: CASE EVENT DATE: 201502
